FAERS Safety Report 8585099-3 (Version None)
Quarter: 2012Q3

REPORT INFORMATION
  Report Type: 
  Country: None (occurrence: None)
  Receive Date: 20120810
  Receipt Date: 20120730
  Transmission Date: 20120928
  Serious: Yes (Other)
  Sender: FDA-Public Use
  Company Number: DE-NOVOPROD-357000

PATIENT
  Age: 10 Year
  Sex: Female
  Weight: 32 kg

DRUGS (3)
  1. LEVOTHYROXINE SODIUM [Concomitant]
     Indication: HYPOTHYROIDISM
     Dosage: 7.5 A?G, QD
     Route: 048
     Dates: start: 20070101
  2. CORTISOL                           /00014602/ [Concomitant]
     Indication: BLOOD CORTISOL DECREASED
     Dosage: 9, QD
     Route: 048
     Dates: start: 20070101
  3. NORDITROPIN [Suspect]
     Indication: HYPOPITUITARISM
     Dosage: 1 MG, QD
     Route: 058
     Dates: start: 20070101

REACTIONS (1)
  - OSTEOCHONDROSIS [None]
